FAERS Safety Report 9805571 (Version 1)
Quarter: 2014Q1

REPORT INFORMATION
  Report Type: Spontaneous
  Country: US (occurrence: None)
  Receive Date: 20140108
  Receipt Date: 20140108
  Transmission Date: 20141002
  Serious: Yes (Other)
  Sender: FDA-Public Use
  Company Number: None

PATIENT
  Age: 78 Year
  Sex: Female
  Weight: 57.61 kg

DRUGS (1)
  1. CIPROFLOXACIN, 500 MG, WEST-WARD [Suspect]
     Indication: PROPHYLAXIS
     Dates: start: 20131106, end: 20131108

REACTIONS (1)
  - Neuropathy peripheral [None]
